FAERS Safety Report 8167406-9 (Version None)
Quarter: 2012Q1

REPORT INFORMATION
  Report Type: 
  Country: None (occurrence: None)
  Receive Date: 20120227
  Receipt Date: 20120217
  Transmission Date: 20120608
  Serious: Yes (Other)
  Sender: FDA-Public Use
  Company Number: US-ELI_LILLY_AND_COMPANY-US201202006024

PATIENT
  Sex: Male

DRUGS (7)
  1. GLIMEPIRID [Concomitant]
     Dosage: 1 MG, UNKNOWN
  2. CITALOPRAM HYDROBROMIDE [Concomitant]
     Dosage: 10 MG, QD
  3. PRAVASTATIN [Concomitant]
     Dosage: UNK, UNKNOWN
  4. EFFIENT [Suspect]
     Indication: STENT PLACEMENT
     Dosage: 10 MG, PRESCRIBED FOR DAILY BUT TAKING EVERY OTHER DAY
     Dates: start: 20110601
  5. ASPIRIN [Concomitant]
     Dosage: 81 MG, QD
  6. LOSARTAN POTASSIUM [Concomitant]
     Dosage: 25 MG, UNKNOWN
  7. METFORMIN HCL [Concomitant]
     Dosage: UNK, BID

REACTIONS (2)
  - STENT PLACEMENT [None]
  - DRUG DOSE OMISSION [None]
